FAERS Safety Report 10052416 (Version 2)
Quarter: 2014Q2

REPORT INFORMATION
  Report Type: Spontaneous
  Country: US (occurrence: US)
  Receive Date: 20140402
  Receipt Date: 20140502
  Transmission Date: 20141212
  Serious: Yes (Other)
  Sender: FDA-Public Use
  Company Number: US-JNJFOC-20140315344

PATIENT
  Age: 83 Year
  Sex: Male

DRUGS (4)
  1. TYLENOL WITH CODEINE [Suspect]
     Indication: PRODUCT USED FOR UNKNOWN INDICATION
     Route: 065
  2. ULTRAM [Suspect]
     Indication: PRODUCT USED FOR UNKNOWN INDICATION
     Route: 065
  3. PLAVIX [Suspect]
     Indication: PRODUCT USED FOR UNKNOWN INDICATION
     Route: 065
  4. XENAZINE [Suspect]
     Indication: DYSKINESIA
     Route: 048
     Dates: start: 20140228

REACTIONS (2)
  - Hallucination [Unknown]
  - Impaired work ability [Unknown]
